FAERS Safety Report 20560667 (Version 3)
Quarter: 2022Q1

REPORT INFORMATION
  Report Type: Spontaneous
  Country: US (occurrence: US)
  Receive Date: 20220307
  Receipt Date: 20220322
  Transmission Date: 20220423
  Serious: No
  Sender: FDA-Public Use
  Company Number: US-AMGEN-USASP2022038773

PATIENT
  Age: 77 Year
  Sex: Female

DRUGS (1)
  1. OTEZLA [Suspect]
     Active Substance: APREMILAST
     Indication: Psoriasis
     Dosage: 30 MILLIGRAM, BID
     Route: 065
     Dates: start: 20220127, end: 20220228

REACTIONS (9)
  - Respiratory tract congestion [Unknown]
  - Pruritus [Unknown]
  - Chills [Unknown]
  - Rhinorrhoea [Unknown]
  - Throat irritation [Unknown]
  - Headache [Unknown]
  - Feeling of body temperature change [Unknown]
  - Tremor [Unknown]
  - Psoriasis [Unknown]

NARRATIVE: CASE EVENT DATE: 20220101
